FAERS Safety Report 15058016 (Version 1)
Quarter: 2018Q2

REPORT INFORMATION
  Report Type: Spontaneous
  Country: FR (occurrence: FR)
  Receive Date: 20180625
  Receipt Date: 20180625
  Transmission Date: 20180711
  Serious: Yes (Hospitalization)
  Sender: FDA-Public Use
  Company Number: FR-ABBVIE-18P-056-2396239-00

PATIENT
  Age: 69 Year
  Sex: Male

DRUGS (3)
  1. LEUPRORELIN ACETATE [Suspect]
     Active Substance: LEUPROLIDE ACETATE
     Indication: PROSTATE CANCER
     Dosage: UNK UNK, MONTHLY
     Route: 058
     Dates: start: 20180427, end: 20180427
  2. BICALUTAMIDE. [Concomitant]
     Active Substance: BICALUTAMIDE
     Indication: PROSTATE CANCER
     Route: 048
  3. ZOPICLONE [Concomitant]
     Active Substance: ZOPICLONE
     Indication: INSOMNIA
     Dosage: UNK UNK, QD
     Route: 048

REACTIONS (6)
  - Anaemia [Not Recovered/Not Resolved]
  - Delirium [Recovered/Resolved]
  - Insomnia [Recovered/Resolved]
  - Affective disorder [Recovered/Resolved]
  - Logorrhoea [Recovered/Resolved]
  - Blood alkaline phosphatase increased [Not Recovered/Not Resolved]

NARRATIVE: CASE EVENT DATE: 201805
